FAERS Safety Report 15260792 (Version 3)
Quarter: 2019Q2

REPORT INFORMATION
  Report Type: Spontaneous
  Country: FI (occurrence: FI)
  Receive Date: 20180809
  Receipt Date: 20190520
  Transmission Date: 20190711
  Serious: Yes (Other)
  Sender: FDA-Public Use
  Company Number: FI-JNJFOC-20180801976

PATIENT
  Age: 61 Year
  Sex: Male

DRUGS (24)
  1. OFTAGEL [Concomitant]
     Active Substance: CARBOMER
     Route: 065
  2. VENTOLINE [Concomitant]
     Active Substance: ALBUTEROL
     Route: 055
  3. CYANOCOBALAMIN. [Concomitant]
     Active Substance: CYANOCOBALAMIN
     Dosage: 1 X 1
     Route: 065
  4. TRAMADOL RETARD [Concomitant]
     Active Substance: TRAMADOL
     Dosage: 1 X 2
     Route: 065
  5. USTEKINUMAB [Suspect]
     Active Substance: USTEKINUMAB
     Indication: PSORIASIS
     Route: 058
     Dates: start: 20161207
  6. DIVISUN [Concomitant]
     Dosage: 2 X 1
     Route: 065
  7. ATARAX [Concomitant]
     Active Substance: HYDROXYZINE HYDROCHLORIDE
     Route: 065
  8. SERTRALINE [Concomitant]
     Active Substance: SERTRALINE HYDROCHLORIDE
     Dosage: 3-0-0
     Route: 065
  9. TIOTROPIUM BROMIDE [Concomitant]
     Active Substance: TIOTROPIUM BROMIDE
     Dosage: 2.5 UNIT UNSPECIFIED 2 X 1
     Route: 065
  10. PITOFENONE HYDROCHLORIDE [Concomitant]
     Route: 065
  11. METOHEXAL [Concomitant]
     Active Substance: METOPROLOL
     Dosage: 1 X 1
     Route: 065
  12. LYRICA [Concomitant]
     Active Substance: PREGABALIN
     Dosage: 1 X 2
     Route: 065
  13. PARACETAMOL [Concomitant]
     Active Substance: ACETAMINOPHEN
     Route: 065
  14. BURANA [Concomitant]
     Active Substance: IBUPROFEN
     Route: 065
  15. ZANIDIP [Concomitant]
     Active Substance: LERCANIDIPINE HYDROCHLORIDE
     Dosage: 2 X 1
     Route: 065
  16. EMGESAN [Concomitant]
     Active Substance: MAGNESIUM HYDROXIDE
     Dosage: 1-2
     Route: 065
  17. MUCOMYST [Concomitant]
     Active Substance: ACETYLCYSTEINE
     Dosage: 1 X 3
     Route: 065
  18. EPIPEN [Concomitant]
     Active Substance: EPINEPHRINE
     Route: 065
  19. TRAMAL [Concomitant]
     Active Substance: TRAMADOL
     Route: 065
  20. USTEKINUMAB [Suspect]
     Active Substance: USTEKINUMAB
     Indication: PSORIASIS
     Route: 058
     Dates: start: 20170103, end: 2017
  21. SERETIDE [Concomitant]
     Active Substance: FLUTICASONE PROPIONATE\SALMETEROL XINAFOATE
     Dosage: 25/250
     Route: 065
  22. SILDENAFIL. [Concomitant]
     Active Substance: SILDENAFIL
     Route: 065
  23. OXYNORM [Concomitant]
     Active Substance: OXYCODONE HYDROCHLORIDE
     Route: 065
  24. TEMAZEPAM. [Concomitant]
     Active Substance: TEMAZEPAM
     Route: 065

REACTIONS (2)
  - Osteonecrosis [Unknown]
  - Ill-defined disorder [Unknown]
